FAERS Safety Report 12569482 (Version 1)
Quarter: 2016Q3

REPORT INFORMATION
  Report Type: Spontaneous
  Country: ES (occurrence: ES)
  Receive Date: 20160719
  Receipt Date: 20160719
  Transmission Date: 20161109
  Serious: Yes (Hospitalization, Other)
  Sender: FDA-Public Use
  Company Number: ES-ACTAVIS-2016-15665

PATIENT
  Age: 77 Year
  Sex: Female

DRUGS (6)
  1. PHENELZINE [Interacting]
     Active Substance: PHENELZINE
     Indication: BIPOLAR DISORDER
     Dosage: UNK
     Route: 065
  2. PHENELZINE [Interacting]
     Active Substance: PHENELZINE
     Indication: DEPRESSION
  3. OLANZAPINE (UNKNOWN) [Interacting]
     Active Substance: OLANZAPINE
     Indication: BIPOLAR DISORDER
     Dosage: UNK
     Route: 065
  4. OLANZAPINE (UNKNOWN) [Interacting]
     Active Substance: OLANZAPINE
     Indication: DEPRESSION
  5. DULOXETINE (UNKNOWN) [Suspect]
     Active Substance: DULOXETINE
     Indication: BIPOLAR DISORDER
     Dosage: UNK
     Route: 065
  6. DULOXETINE (UNKNOWN) [Interacting]
     Active Substance: DULOXETINE
     Indication: DEPRESSION

REACTIONS (2)
  - Serotonin syndrome [Recovering/Resolving]
  - Drug interaction [Recovering/Resolving]
